FAERS Safety Report 5198960-7 (Version None)
Quarter: 2007Q1

REPORT INFORMATION
  Report Type: 
  Country: None (occurrence: None)
  Receive Date: 20070104
  Receipt Date: 20060802
  Transmission Date: 20070707
  Serious: Yes (Life-Threatening, Hospitalization)
  Sender: FDA-Public Use
  Company Number: DE-ROCHE-456246

PATIENT
  Age: 22 Year
  Sex: Male

DRUGS (25)
  1. BLINDED DACLIZUMAB [Suspect]
     Route: 042
     Dates: start: 20050818, end: 20051010
  2. MYCOPHENOLATE MOFETIL [Suspect]
     Route: 048
     Dates: start: 20050819, end: 20060719
  3. MYCOPHENOLATE MOFETIL [Suspect]
     Route: 048
     Dates: start: 20060728
  4. CYCLOSPORINE [Suspect]
     Dosage: TAPERED DAILY DOSE.
     Route: 048
     Dates: start: 20050819
  5. PREDNISOLONE [Suspect]
     Route: 048
     Dates: start: 20050819, end: 20060719
  6. PREDNISOLONE [Suspect]
     Route: 048
     Dates: start: 20060722
  7. ACETYLCYSTEINE [Concomitant]
     Dates: start: 20050819
  8. VALGANCICLOVIR HCL [Concomitant]
     Dates: start: 20060107, end: 20060726
  9. VORICONAZOL [Concomitant]
     Dates: start: 20050819
  10. COTRIM [Concomitant]
     Dates: start: 20050826
  11. MAGNESIUM [Concomitant]
     Dates: start: 20050823
  12. CALCIUM [Concomitant]
     Dates: start: 20050823
  13. VIGANTOLETTEN [Concomitant]
     Dates: start: 20050824
  14. RANITIDINE HCL [Concomitant]
     Dates: start: 20050818
  15. KREON [Concomitant]
     Dosage: DOSE REPORTED AS 6X25,000 IE.
     Dates: start: 20050823
  16. URSODESOXYCHOLIC ACID [Concomitant]
     Dosage: REPORTED AS URSODEOXYCHOLSAURE.
     Dates: start: 20050823
  17. SIMETHICON [Concomitant]
     Dates: start: 20050902
  18. EISEN(II)-GLYCIN-SULFAT-KOMPLEX [Concomitant]
     Dates: start: 20050824
  19. AMPHO MORONAL [Concomitant]
     Dosage: DOSE ALSO REPORTED AS: ^ON NEED^.
     Dates: start: 20050818
  20. PHYTOMENADION [Concomitant]
     Dosage: 10 MG EVERY WEEK.
     Dates: start: 20050824
  21. ALENDRONSAEURE [Concomitant]
     Dates: start: 20050824
  22. VENTOLIN [Concomitant]
     Dates: start: 20050818
  23. COLISTIN [Concomitant]
     Dates: start: 20050819
  24. METOPROLOL SUCCINATE [Concomitant]
     Dates: start: 20051018, end: 20060719
  25. INSULIN [Concomitant]

REACTIONS (1)
  - SEPSIS [None]
